FAERS Safety Report 4855942-X (Version None)
Quarter: 2005Q4

REPORT INFORMATION
  Report Type: 
  Country: None (occurrence: None)
  Receive Date: 20051216
  Receipt Date: 20051206
  Transmission Date: 20060501
  Serious: Yes (Death)
  Sender: FDA-Public Use
  Company Number: FR-JNJFOC-20051104656

PATIENT
  Sex: Male

DRUGS (16)
  1. DURAGESIC-100 [Suspect]
     Route: 062
  2. DURAGESIC-100 [Suspect]
     Indication: CANCER PAIN
     Route: 062
  3. MORPHINE [Interacting]
     Indication: CANCER PAIN
     Route: 058
  4. MIDAZOLAM HCL [Interacting]
     Indication: CANCER PAIN
     Route: 042
  5. XANAX [Concomitant]
     Route: 065
  6. PROPOFOL [Concomitant]
     Route: 065
  7. PROPOFOL [Concomitant]
     Route: 065
  8. PROPOFOL [Concomitant]
     Route: 065
  9. PROPOFOL [Concomitant]
     Route: 065
  10. PROPOFOL [Concomitant]
     Dosage: 1 TABLET = 1 DOSE
     Route: 065
  11. OXYGEN [Concomitant]
     Route: 065
  12. SOLU-MEDROL [Concomitant]
     Route: 065
  13. TRIATEC [Concomitant]
     Route: 065
  14. CELECTOL [Concomitant]
     Route: 065
  15. LOXEN LP [Concomitant]
     Route: 065
  16. DEROXAT [Concomitant]
     Dosage: 1 TABLET = 1 DOSE.
     Route: 065

REACTIONS (4)
  - DRUG INTERACTION [None]
  - MELAENA [None]
  - NEOPLASM MALIGNANT [None]
  - VOMITING [None]
